FAERS Safety Report 14062377 (Version 1)
Quarter: 2017Q4

REPORT INFORMATION
  Report Type: Report from Study
  Country: JP (occurrence: JP)
  Receive Date: 20171009
  Receipt Date: 20171009
  Transmission Date: 20180321
  Serious: Yes (Hospitalization)
  Sender: FDA-Public Use
  Company Number: JP-ROCHE-1930651

PATIENT
  Age: 40 Year
  Sex: Female

DRUGS (4)
  1. BEVACIZUMAB. [Suspect]
     Active Substance: BEVACIZUMAB
     Indication: BREAST CANCER
     Route: 041
     Dates: start: 20131004, end: 20131004
  2. PACLITAXEL. [Suspect]
     Active Substance: PACLITAXEL
     Indication: BREAST CANCER
     Dosage: DOSAGE IS UNCERTAIN.
     Route: 041
     Dates: start: 20131004
  3. BEVACIZUMAB. [Suspect]
     Active Substance: BEVACIZUMAB
     Indication: BREAST CANCER
     Route: 041
     Dates: start: 20131025
  4. PACLITAXEL. [Suspect]
     Active Substance: PACLITAXEL
     Indication: BREAST CANCER
     Dosage: DOSAGE IS UNCERTAIN.
     Route: 041
     Dates: start: 20131025

REACTIONS (7)
  - Sepsis [Recovered/Resolved]
  - Urinary tract infection [Recovering/Resolving]
  - Neuropathy peripheral [Not Recovered/Not Resolved]
  - Hypertension [Not Recovered/Not Resolved]
  - Proteinuria [Recovering/Resolving]
  - Diarrhoea [Recovered/Resolved]
  - Enterocolitis [Unknown]

NARRATIVE: CASE EVENT DATE: 20131013
